FAERS Safety Report 4419609-4 (Version None)
Quarter: 2004Q3

REPORT INFORMATION
  Report Type: 
  Country: None (occurrence: None)
  Receive Date: 20040806
  Receipt Date: 20040806
  Transmission Date: 20050211
  Serious: Yes (Death)
  Sender: FDA-Public Use
  Company Number: None

PATIENT
  Age: 61 Year
  Sex: Female
  Weight: 53 kg

DRUGS (14)
  1. CETUXIMAB [Suspect]
     Indication: PANCREATIC CARCINOMA
     Dosage: 644 MG/QW/IV
     Route: 042
     Dates: start: 20040803
  2. GEMZAR [Suspect]
     Indication: PANCREATIC CARCINOMA
     Dosage: 1610 MG/QW/IV
     Route: 042
     Dates: start: 20040803
  3. CALCIUM [Concomitant]
  4. PREVACID [Concomitant]
  5. EX-LAX [Concomitant]
  6. HYDROCODONE [Concomitant]
  7. MVI'S [Concomitant]
  8. ZOCOR [Concomitant]
  9. LASIX [Concomitant]
  10. ALDACTONE [Concomitant]
  11. OXYCONTIN [Concomitant]
  12. RESTORIL [Concomitant]
  13. PROTONIX [Concomitant]
  14. COMPAZINE [Concomitant]

REACTIONS (7)
  - ABDOMINAL DISTENSION [None]
  - ASCITES [None]
  - DISEASE PROGRESSION [None]
  - MARKEDLY REDUCED DIETARY INTAKE [None]
  - NAUSEA [None]
  - PAIN [None]
  - VOMITING [None]
